FAERS Safety Report 5094313-0 (Version None)
Quarter: 2006Q3

REPORT INFORMATION
  Report Type: 
  Country: None (occurrence: None)
  Receive Date: 20060830
  Receipt Date: 20060830
  Transmission Date: 20061208
  Serious: Yes (Life-Threatening)
  Sender: FDA-Public Use
  Company Number: None

PATIENT
  Age: 59 Year
  Sex: Male
  Weight: 91 kg

DRUGS (1)
  1. CAPTOPRIL [Suspect]
     Indication: HYPERTENSION
     Dosage: 50 MG TID AND BID PO
     Route: 048
     Dates: start: 19990208, end: 20060814

REACTIONS (2)
  - ANGIONEUROTIC OEDEMA [None]
  - RASH [None]
